FAERS Safety Report 9176766 (Version 2)
Quarter: 2013Q2

REPORT INFORMATION
  Report Type: Spontaneous
  Country: MX (occurrence: MX)
  Receive Date: 20130321
  Receipt Date: 20130410
  Transmission Date: 20140414
  Serious: Yes (Other)
  Sender: FDA-Public Use
  Company Number: PHHY2013MX025993

PATIENT
  Age: 82 Year
  Sex: Male

DRUGS (8)
  1. CO-DIOVAN [Suspect]
     Indication: HYPERTENSION
     Dosage: 1 DF, DAILY (160 MG VALS AND 12.5 MG HCT)
     Route: 048
     Dates: start: 2009
  2. NORVAS [Concomitant]
     Dosage: 1 DF, Q12H
  3. ASPIRIN PROTECT [Concomitant]
     Dosage: 1 DF, DAILY
  4. METFORMIN [Concomitant]
     Dosage: 1 DF, DAILY
  5. GLIBENCLAMIDE [Concomitant]
     Dosage: 0.5 DF, UNK
  6. OMEPRAZOL [Concomitant]
     Dosage: 1 DF, DAILY
  7. METOPROLOL [Concomitant]
     Dosage: 1.5 DF, WEEKLY
  8. CALUTOL [Concomitant]
     Dosage: 1 DF, WEEKLY

REACTIONS (7)
  - Prostatomegaly [Recovered/Resolved]
  - Blood pressure inadequately controlled [Recovered/Resolved]
  - Nephrolithiasis [Recovered/Resolved]
  - Blood glucose decreased [Not Recovered/Not Resolved]
  - Diarrhoea [Recovered/Resolved]
  - Dyspnoea [Not Recovered/Not Resolved]
  - Cough [Not Recovered/Not Resolved]
